FAERS Safety Report 8862224 (Version 1)
Quarter: 2012Q4

REPORT INFORMATION
  Report Type: 
  Country: BR (occurrence: BR)
  Receive Date: 20121026
  Receipt Date: 20121026
  Transmission Date: 20130627
  Serious: Yes (Other)
  Sender: FDA-Public Use
  Company Number: BR-ROCHE-1149398

PATIENT
  Sex: Female

DRUGS (4)
  1. RIVOTRIL [Suspect]
     Indication: PRODUCT USED FOR UNKNOWN INDICATION
     Route: 065
  2. LITHIUM [Suspect]
     Indication: BIPOLAR DISORDER
     Route: 065
  3. PAMELOR [Concomitant]
     Route: 065
  4. LAMOTRIGINE [Concomitant]

REACTIONS (9)
  - Hypothyroidism [Not Recovered/Not Resolved]
  - Cataract [Not Recovered/Not Resolved]
  - Disorientation [Recovered/Resolved]
  - Depressed mood [Recovered/Resolved]
  - Aggression [Recovered/Resolved]
  - Suicide attempt [Recovered/Resolved]
  - Restlessness [Recovered/Resolved]
  - Antipsychotic drug level increased [Unknown]
  - Mood swings [Recovered/Resolved]
